FAERS Safety Report 14842331 (Version 1)
Quarter: 2018Q2

REPORT INFORMATION
  Report Type: Spontaneous
  Country: US (occurrence: US)
  Receive Date: 20180418
  Receipt Date: 20180418
  Transmission Date: 20180711
  Serious: No
  Sender: FDA-Public Use
  Company Number: None

PATIENT
  Age: 71 Year
  Sex: Female
  Weight: 81.9 kg

DRUGS (1)
  1. NATURE-THROID [Suspect]
     Active Substance: THYROID, PORCINE
     Indication: HYPOTHYROIDISM
     Route: 048
     Dates: start: 20180309, end: 20180329

REACTIONS (10)
  - Skin reaction [None]
  - Feeling abnormal [None]
  - Discomfort [None]
  - Erythema [None]
  - Therapy non-responder [None]
  - Skin tightness [None]
  - Rash [None]
  - Skin mass [None]
  - Poor quality sleep [None]
  - Pain of skin [None]

NARRATIVE: CASE EVENT DATE: 20180309
